FAERS Safety Report 6809806-2 (Version None)
Quarter: 2010Q2

REPORT INFORMATION
  Report Type: 
  Country: None (occurrence: None)
  Receive Date: 20100630
  Receipt Date: 20100621
  Transmission Date: 20101027
  Serious: Yes (Other)
  Sender: FDA-Public Use
  Company Number: US-JNJFOC-20100606490

PATIENT
  Sex: Male
  Weight: 116.12 kg

DRUGS (6)
  1. SANDOZ FENTANYL TRANSDERMAL SYSTEM [Suspect]
     Indication: PAIN
     Route: 062
  2. SANDOZ FENTANYL TRANSDERMAL SYSTEM [Suspect]
     Dosage: NDC NUMBER 0781-7243-55
     Route: 062
  3. DURAGESIC-100 [Suspect]
     Indication: PAIN
     Route: 062
  4. FENTANYL-100 [Suspect]
     Indication: PAIN
     Route: 062
  5. HORMONE SHOTS [Suspect]
     Indication: PROSTATIC SPECIFIC ANTIGEN INCREASED
     Route: 065
  6. LORTAB [Concomitant]
     Indication: PAIN
     Route: 048

REACTIONS (15)
  - ADVERSE EVENT [None]
  - CONSTIPATION [None]
  - DYSPEPSIA [None]
  - HOT FLUSH [None]
  - HYPERHIDROSIS [None]
  - HYPERTENSION [None]
  - HYPOACUSIS [None]
  - NERVOUSNESS [None]
  - PERICARDIAL EFFUSION [None]
  - POOR PERIPHERAL CIRCULATION [None]
  - PRODUCT ADHESION ISSUE [None]
  - PROSTATE CANCER [None]
  - RESPIRATORY DISORDER [None]
  - VISUAL IMPAIRMENT [None]
  - WRONG TECHNIQUE IN DRUG USAGE PROCESS [None]
